FAERS Safety Report 24950619 (Version 1)
Quarter: 2025Q1

REPORT INFORMATION
  Report Type: Spontaneous
  Country: US (occurrence: US)
  Receive Date: 20250210
  Receipt Date: 20250210
  Transmission Date: 20250409
  Serious: Yes (Death)
  Sender: AVEO PHARMACEUTICALS
  Company Number: US-AVEO PHARMACEUTICALS, INC.-2025-AVEO-US000100

PATIENT

DRUGS (17)
  1. FOTIVDA [Suspect]
     Active Substance: TIVOZANIB HYDROCHLORIDE
     Indication: Renal cell carcinoma
     Dosage: 1.34 MG, DAILY FOR 21 DAYS WITH 7 DAYS OFF (28-DAY CYCLE)
     Route: 048
     Dates: start: 20250202
  2. ASPIRIN [Concomitant]
     Active Substance: ASPIRIN
  3. BENADRYL [Concomitant]
     Active Substance: DIPHENHYDRAMINE HYDROCHLORIDE
  4. CARVEDILOL [Concomitant]
     Active Substance: CARVEDILOL
  5. CITALOPRAM HYDROBROMIDE [Concomitant]
     Active Substance: CITALOPRAM HYDROBROMIDE
  6. CLOBETASOL [Concomitant]
     Active Substance: CLOBETASOL
  7. FERROUS SULFATE [Concomitant]
     Active Substance: FERROUS SULFATE
  8. LOPERAMIDE [Concomitant]
     Active Substance: LOPERAMIDE
  9. NOVOLOG [Concomitant]
     Active Substance: INSULIN ASPART
  10. ONDANSETRON [Concomitant]
     Active Substance: ONDANSETRON
  11. ROSUVASTATIN [Concomitant]
     Active Substance: ROSUVASTATIN
  12. TORSEMIDE [Concomitant]
     Active Substance: TORSEMIDE
  13. TOUJEO [Concomitant]
     Active Substance: INSULIN GLARGINE
  14. TRULICITY [Concomitant]
     Active Substance: DULAGLUTIDE
  15. UREA [Concomitant]
     Active Substance: UREA
     Route: 061
  16. UREACIN [Concomitant]
     Route: 061
  17. VITAMIN D [Concomitant]
     Active Substance: VITAMIN D NOS

REACTIONS (1)
  - Death [Fatal]

NARRATIVE: CASE EVENT DATE: 20250205
